FAERS Safety Report 23493006 (Version 1)
Quarter: 2024Q1

REPORT INFORMATION
  Report Type: Report from Study
  Country: CO (occurrence: CO)
  Receive Date: 20240207
  Receipt Date: 20240207
  Transmission Date: 20240410
  Serious: Yes (Death, Other)
  Sender: FDA-Public Use
  Company Number: CO-ABBVIE-5627543

PATIENT
  Age: 85 Year
  Sex: Male

DRUGS (2)
  1. VENETOCLAX [Suspect]
     Active Substance: VENETOCLAX
     Indication: Acute myeloid leukaemia
     Dosage: FORM STRENGTH: 100 MG
     Route: 048
     Dates: start: 20221214
  2. VENETOCLAX [Suspect]
     Active Substance: VENETOCLAX
     Indication: Acute myeloid leukaemia
     Dosage: FORM STRENGTH: 100 MG
     Route: 048
     Dates: start: 20240131

REACTIONS (4)
  - Unevaluable event [Fatal]
  - Asthenia [Not Recovered/Not Resolved]
  - Respiratory arrest [Fatal]
  - Acute myeloid leukaemia [Fatal]

NARRATIVE: CASE EVENT DATE: 20240204
